FAERS Safety Report 21008807 (Version 1)
Quarter: 2022Q2

REPORT INFORMATION
  Report Type: Spontaneous
  Country: US (occurrence: US)
  Receive Date: 20220627
  Receipt Date: 20220627
  Transmission Date: 20220720
  Serious: Yes (Other)
  Sender: FDA-Public Use
  Company Number: US-BRISTOL-MYERS SQUIBB COMPANY-2022-060382

PATIENT
  Age: 77 Year
  Sex: Male

DRUGS (1)
  1. REVLIMID [Suspect]
     Active Substance: LENALIDOMIDE
     Indication: Plasma cell myeloma
     Dosage: TAKE 1 CAPSULE BY MOUTH DAILY AS DIRECTED FOR 21 DAYS FOLLOWED BY 7 DAYS OFF. REPEAT MONTHLY
     Route: 048

REACTIONS (3)
  - Arthralgia [Unknown]
  - Back pain [Unknown]
  - Malignant neoplasm progression [Unknown]
